FAERS Safety Report 5730892-5 (Version None)
Quarter: 2008Q2

REPORT INFORMATION
  Report Type: 
  Country: None (occurrence: None)
  Receive Date: 20080507
  Receipt Date: 20080428
  Transmission Date: 20081010
  Serious: Yes (Other)
  Sender: FDA-Public Use
  Company Number: GB-PFIZER INC-2008038495

PATIENT
  Age: 69 Year
  Sex: Male
  Weight: 77 kg

DRUGS (1)
  1. CHANTIX [Suspect]
     Indication: SMOKING CESSATION THERAPY
     Dosage: TEXT:DAILY EVERY DAY
     Route: 048
     Dates: start: 20080329, end: 20080329

REACTIONS (3)
  - ANAPHYLACTIC REACTION [None]
  - DEPRESSION [None]
  - TREMOR [None]
